FAERS Safety Report 7034050-6 (Version None)
Quarter: 2010Q4

REPORT INFORMATION
  Report Type: 
  Country: None (occurrence: None)
  Receive Date: 20101006
  Receipt Date: 20100922
  Transmission Date: 20110411
  Serious: Yes (Other)
  Sender: FDA-Public Use
  Company Number: VAL_00466_2010

PATIENT

DRUGS (1)
  1. ROCALTROL [Suspect]
     Indication: HYPERPARATHYROIDISM SECONDARY
     Dosage: (DF)

REACTIONS (2)
  - BLOOD PARATHYROID HORMONE INCREASED [None]
  - RENAL FAILURE ACUTE [None]
